FAERS Safety Report 21404933 (Version 1)
Quarter: 2022Q4

REPORT INFORMATION
  Report Type: Spontaneous
  Country: US (occurrence: None)
  Receive Date: 20221003
  Receipt Date: 20221003
  Transmission Date: 20230113
  Serious: No
  Sender: FDA-Public Use
  Company Number: None

PATIENT
  Sex: Female

DRUGS (1)
  1. REMICADE [Suspect]
     Active Substance: INFLIXIMAB
     Indication: Psoriasis
     Dosage: 5MG PER KG  EVERY 8 WEEKS INTRAVENOUSLY?
     Route: 042
     Dates: start: 20220918

REACTIONS (1)
  - Drug ineffective [None]
